FAERS Safety Report 5496601-2 (Version None)
Quarter: 2007Q4

REPORT INFORMATION
  Report Type: 
  Country: None (occurrence: None)
  Receive Date: 20071025
  Receipt Date: 20070713
  Transmission Date: 20080405
  Serious: No
  Sender: FDA-Public Use
  Company Number: A0659736A

PATIENT
  Age: 45 Year
  Sex: Male
  Weight: 72 kg

DRUGS (8)
  1. ADVAIR DISKUS 100/50 [Suspect]
     Indication: ASTHMA
     Dates: start: 20070101
  2. PREDNISONE [Concomitant]
     Route: 048
  3. ALBUTEROL [Concomitant]
     Route: 048
  4. NASACORT [Concomitant]
     Route: 045
  5. SINGULAIR [Concomitant]
     Route: 048
  6. PREVACID [Concomitant]
     Route: 048
  7. ALLEGRA D 24 HOUR [Concomitant]
     Route: 048
  8. ACTONEL [Concomitant]
     Route: 048

REACTIONS (3)
  - APHONIA [None]
  - DRUG INEFFECTIVE [None]
  - PHARYNGITIS [None]
